FAERS Safety Report 15796360 (Version 8)
Quarter: 2020Q2

REPORT INFORMATION
  Report Type: Report from Study
  Country: CO (occurrence: CO)
  Receive Date: 20190108
  Receipt Date: 20200610
  Transmission Date: 20200713
  Serious: Yes (Hospitalization, Other)
  Sender: FDA-Public Use
  Company Number: CO-BRISTOL-MYERS SQUIBB COMPANY-BMS-2016-107968

PATIENT
  Age: 47 Year
  Sex: Female

DRUGS (3)
  1. ABATACEPT [Suspect]
     Active Substance: ABATACEPT
     Indication: PRODUCT USED FOR UNKNOWN INDICATION
     Dosage: 500 MILLIGRAM, QMO
     Route: 042
     Dates: start: 20160611, end: 20181206
  2. ABATACEPT [Suspect]
     Active Substance: ABATACEPT
     Indication: PRODUCT USED FOR UNKNOWN INDICATION
     Dosage: 750 MILLIGRAM, Q4WK
     Route: 042
     Dates: start: 20160611
  3. ABATACEPT [Suspect]
     Active Substance: ABATACEPT
     Indication: RHEUMATOID ARTHRITIS
     Dosage: 259 MILLIGRAM, QMO
     Route: 065
     Dates: start: 20160601

REACTIONS (11)
  - Foot deformity [Recovering/Resolving]
  - Arthritis [Recovering/Resolving]
  - Procedural pain [Recovering/Resolving]
  - Migraine [Recovering/Resolving]
  - Arthropathy [Recovering/Resolving]
  - Post procedural swelling [Recovering/Resolving]
  - Adverse event [Recovered/Resolved]
  - Arthralgia [Recovering/Resolving]
  - Post procedural infection [Recovering/Resolving]
  - Pain in extremity [Recovering/Resolving]
  - Pain [Recovering/Resolving]

NARRATIVE: CASE EVENT DATE: 20161101
